FAERS Safety Report 5675692-X (Version None)
Quarter: 2008Q1

REPORT INFORMATION
  Report Type: 
  Country: None (occurrence: None)
  Receive Date: 20080321
  Receipt Date: 20080312
  Transmission Date: 20080703
  Serious: Yes (Other)
  Sender: FDA-Public Use
  Company Number: PHBS2008IT03362

PATIENT

DRUGS (1)
  1. STALEVO 100 [Suspect]
     Route: 065

REACTIONS (3)
  - CROHN'S DISEASE [None]
  - INTESTINAL HAEMORRHAGE [None]
  - MUCOUS STOOLS [None]
